FAERS Safety Report 8310545-X (Version None)
Quarter: 2012Q2

REPORT INFORMATION
  Report Type: 
  Country: None (occurrence: None)
  Receive Date: 20120425
  Receipt Date: 20120412
  Transmission Date: 20120825
  Serious: Yes (Hospitalization)
  Sender: FDA-Public Use
  Company Number: PT-ROCHE-1059391

PATIENT
  Sex: Male
  Weight: 78 kg

DRUGS (2)
  1. RIBAVIRIN [Suspect]
     Indication: HEPATITIS C
     Dosage: 600 MG, 800 MG
     Route: 048
     Dates: start: 20110408, end: 20120316
  2. PEGASYS [Suspect]
     Indication: HEPATITIS C
     Route: 058
     Dates: start: 20110408, end: 20120316

REACTIONS (2)
  - NEPHROTIC SYNDROME [None]
  - ANAEMIA [None]
